FAERS Safety Report 9097663 (Version 3)
Quarter: 2013Q4

REPORT INFORMATION
  Report Type: Spontaneous
  Country: US (occurrence: US)
  Receive Date: 20130212
  Receipt Date: 20131029
  Transmission Date: 20140711
  Serious: Yes (Other)
  Sender: FDA-Public Use
  Company Number: PHEH2013US003169

PATIENT
  Sex: Male

DRUGS (3)
  1. TRILEPTAL [Suspect]
     Dosage: 1200 MG, UNK
     Route: 048
  2. TRILEPTAL [Suspect]
     Dosage: 450 MG (ONE AND HALF TABLETS), DAILY
     Route: 048
  3. TEGRETOL [Suspect]
     Dosage: UNK UKN, UNK

REACTIONS (9)
  - Loss of consciousness [Unknown]
  - Epistaxis [Unknown]
  - Convulsion [Unknown]
  - Swelling face [Unknown]
  - Abasia [Unknown]
  - Haemorrhage [Unknown]
  - Hypoaesthesia [Unknown]
  - Anxiety [Unknown]
  - Swelling [Unknown]
